FAERS Safety Report 7700671-8 (Version None)
Quarter: 2011Q3

REPORT INFORMATION
  Report Type: 
  Country: None (occurrence: None)
  Receive Date: 20110822
  Receipt Date: 20110822
  Transmission Date: 20111222
  Serious: Yes (Hospitalization)
  Sender: FDA-Public Use
  Company Number: None

PATIENT
  Age: 37 Year
  Sex: Female
  Weight: 55.791 kg

DRUGS (3)
  1. LEVORA 0.15/30-21 [Suspect]
     Indication: MENSTRUAL DISORDER
     Dosage: 1 PILL
     Route: 048
     Dates: start: 20110805, end: 20110821
  2. LEVORA 0.15/30-21 [Suspect]
     Indication: MOOD SWINGS
     Dosage: 1 PILL
     Route: 048
     Dates: start: 20110805, end: 20110821
  3. LEVORA 0.15/30-21 [Suspect]
     Indication: CONTRACEPTION
     Dosage: 1 PILL
     Route: 048
     Dates: start: 20110805, end: 20110821

REACTIONS (4)
  - DIZZINESS [None]
  - CONFUSIONAL STATE [None]
  - VISION BLURRED [None]
  - HYPOAESTHESIA [None]
